FAERS Safety Report 20138343 (Version 1)
Quarter: 2021Q4

REPORT INFORMATION
  Report Type: Spontaneous
  Country: FR (occurrence: FR)
  Receive Date: 20211202
  Receipt Date: 20211202
  Transmission Date: 20220303
  Serious: Yes (Hospitalization)
  Sender: FDA-Public Use
  Company Number: None

PATIENT
  Age: 86 Year
  Sex: Female
  Weight: 54.7 kg

DRUGS (14)
  1. IRBESARTAN [Interacting]
     Active Substance: IRBESARTAN
     Dosage: 150 MG
     Route: 048
     Dates: start: 20210929, end: 20211019
  2. RAMIPRIL [Suspect]
     Active Substance: RAMIPRIL
     Dosage: 2.5 MG
     Route: 048
     Dates: start: 20211019, end: 20211026
  3. APIXABAN [Interacting]
     Active Substance: APIXABAN
     Dosage: 2.5 MG
     Route: 048
     Dates: start: 20211004, end: 20211026
  4. AMOXICILLIN [Suspect]
     Active Substance: AMOXICILLIN
     Dosage: 1 G
     Route: 048
     Dates: start: 20211020, end: 20211024
  5. AMIODARONE HYDROCHLORIDE [Suspect]
     Active Substance: AMIODARONE HYDROCHLORIDE
     Dosage: 4-0-0 (J1), 2-0-0 (1 WEEK), 1-0-0 (MAINTENANCE) , UNIT DOSE : 400 MG
     Route: 048
     Dates: start: 20211020, end: 20211025
  6. AMIODARONE HYDROCHLORIDE [Suspect]
     Active Substance: AMIODARONE HYDROCHLORIDE
     Dosage: 4-0-0 (J1), 2-0-0 (1 WEEK), 1-0-0 (MAINTENANCE) , UNIT DOSE : 800 MG
     Route: 048
     Dates: start: 20211019, end: 20211019
  7. FUROSEMIDE [Suspect]
     Active Substance: FUROSEMIDE
     Dosage: 40 MG
     Route: 048
     Dates: start: 20211018, end: 20211026
  8. FUROSEMIDE [Suspect]
     Active Substance: FUROSEMIDE
     Dosage: 40 MG
     Route: 048
     Dates: start: 20211014, end: 20211015
  9. FUROSEMIDE [Suspect]
     Active Substance: FUROSEMIDE
     Dosage: 80 MG
     Route: 048
     Dates: start: 20211012, end: 20211018
  10. FUROSEMIDE [Suspect]
     Active Substance: FUROSEMIDE
     Dosage: 40 MG
     Route: 048
     Dates: start: 20211006, end: 20211012
  11. AMPHOTERICIN B [Suspect]
     Active Substance: AMPHOTERICIN B
     Indication: Oral fungal infection
     Dosage: 15 ML
     Route: 002
     Dates: start: 20211014, end: 20211023
  12. COMIRNATY [Suspect]
     Active Substance: TOZINAMERAN
     Dosage: 1 DF, COVID-19 MRNA VACCINE (MODIFIED NUCLEOSIDE)
     Route: 030
     Dates: start: 20211004, end: 20211004
  13. MICONAZOLE [Suspect]
     Active Substance: MICONAZOLE
     Indication: Oral fungal infection
     Dosage: 50 MG
     Route: 048
     Dates: start: 20211013, end: 20211014
  14. OXYCODONE HYDROCHLORIDE [Suspect]
     Active Substance: OXYCODONE HYDROCHLORIDE
     Dosage: 5 MG
     Route: 048
     Dates: start: 20211015, end: 20211026

REACTIONS (3)
  - Hepatic enzyme increased [Not Recovered/Not Resolved]
  - Hepatic cytolysis [Not Recovered/Not Resolved]
  - Drug interaction [Unknown]

NARRATIVE: CASE EVENT DATE: 20211021
